FAERS Safety Report 11595747 (Version 1)
Quarter: 2015Q4

REPORT INFORMATION
  Report Type: Spontaneous
  Country: US (occurrence: US)
  Receive Date: 20151006
  Receipt Date: 20151006
  Transmission Date: 20160304
  Serious: Yes (Hospitalization, Other)
  Sender: FDA-Public Use
  Company Number: US-APOTEX-2015AP013180

PATIENT
  Age: 35 Year
  Sex: Female

DRUGS (1)
  1. LITHIUM CARBONATE. [Suspect]
     Active Substance: LITHIUM CARBONATE
     Indication: BIPOLAR DISORDER
     Route: 065

REACTIONS (5)
  - Mental status changes [Recovered/Resolved]
  - Left ventricular dysfunction [Recovered/Resolved]
  - Respiratory failure [Recovered/Resolved]
  - Myocarditis [Recovered/Resolved]
  - Toxicity to various agents [Recovered/Resolved]
